FAERS Safety Report 5036316-8 (Version None)
Quarter: 2006Q2

REPORT INFORMATION
  Report Type: 
  Country: None (occurrence: None)
  Receive Date: 20060601
  Receipt Date: 20060426
  Transmission Date: 20061013
  Serious: No
  Sender: FDA-Public Use
  Company Number: US200604004484

PATIENT
  Age: 63 Year
  Sex: Female

DRUGS (4)
  1. CYMBALTA [Suspect]
     Indication: DEPRESSION
     Dosage: 30 MG
     Dates: start: 20060420, end: 20060420
  2. DARVOCET-N 100 [Concomitant]
  3. ACIPHEX [Concomitant]
  4. LIPITOR [Concomitant]

REACTIONS (7)
  - CRYING [None]
  - DIARRHOEA [None]
  - FEELING ABNORMAL [None]
  - NAUSEA [None]
  - RETCHING [None]
  - STOMACH DISCOMFORT [None]
  - VOMITING [None]
